FAERS Safety Report 5874466-4 (Version None)
Quarter: 2008Q3

REPORT INFORMATION
  Report Type: 
  Country: None (occurrence: None)
  Receive Date: 20080908
  Receipt Date: 20080827
  Transmission Date: 20090109
  Serious: Yes (Other)
  Sender: FDA-Public Use
  Company Number: AU-PFIZER INC-2008072753

PATIENT
  Sex: Female

DRUGS (3)
  1. CHANTIX [Suspect]
     Dates: start: 20080101, end: 20080820
  2. COVERSYL [Concomitant]
     Indication: HYPERTENSION
     Dosage: DAILY DOSE:5MG
  3. ALL OTHER THERAPEUTIC PRODUCTS [Concomitant]
     Indication: BLOOD CHOLESTEROL INCREASED

REACTIONS (3)
  - BACK PAIN [None]
  - NAUSEA [None]
  - POLLAKIURIA [None]
